FAERS Safety Report 4910515-5 (Version None)
Quarter: 2006Q1

REPORT INFORMATION
  Report Type: 
  Country: None (occurrence: None)
  Receive Date: 20060209
  Receipt Date: 20060127
  Transmission Date: 20060701
  Serious: Yes (Death, Hospitalization)
  Sender: FDA-Public Use
  Company Number: 13372

PATIENT
  Age: 73 Year
  Sex: Female

DRUGS (14)
  1. CARBOPLATIN [Suspect]
     Indication: ENDOMETRIAL CANCER
  2. DIHYDROCODEINE [Concomitant]
  3. ACETAMINOPHEN [Concomitant]
  4. METOCLOPRAMIDE [Concomitant]
  5. MORPHINE SULFATE [Concomitant]
  6. WARFARIN SODIUM [Concomitant]
  7. OMEPRAZOLE [Concomitant]
  8. DEXAMETHASONE SODIUM PHOSPHATE [Concomitant]
  9. SALBUTAMOL [Concomitant]
  10. FENTANYL CITRATE [Concomitant]
  11. SENNA [Concomitant]
  12. CO-DANTHRAMER [Concomitant]
  13. CYCLIZINE [Concomitant]
  14. ENOXAPARIN SODIUM [Concomitant]

REACTIONS (3)
  - BRONCHOPNEUMONIA [None]
  - METASTATIC NEOPLASM [None]
  - RENAL FAILURE [None]
